FAERS Safety Report 14690057 (Version 1)
Quarter: 2018Q1

REPORT INFORMATION
  Report Type: Report from Study
  Country: US (occurrence: US)
  Receive Date: 20180328
  Receipt Date: 20180328
  Transmission Date: 20180509
  Serious: Yes (Other)
  Sender: FDA-Public Use
  Company Number: US-ASTELLAS-2018US015529

PATIENT
  Sex: Female

DRUGS (2)
  1. ERLOTINIB [Suspect]
     Active Substance: ERLOTINIB
     Indication: BONE CANCER
     Route: 065
  2. ERLOTINIB [Suspect]
     Active Substance: ERLOTINIB
     Indication: LUNG NEOPLASM MALIGNANT
     Route: 065

REACTIONS (7)
  - Hepatic cirrhosis [Unknown]
  - Rash [Unknown]
  - Dysphagia [Unknown]
  - Diarrhoea [Unknown]
  - Pruritus [Unknown]
  - Pleural effusion [Unknown]
  - Oral candidiasis [Unknown]
